FAERS Safety Report 6839429-0 (Version None)
Quarter: 2010Q3

REPORT INFORMATION
  Report Type: 
  Country: None (occurrence: None)
  Receive Date: 20100714
  Receipt Date: 20100705
  Transmission Date: 20110219
  Serious: Yes (Hospitalization)
  Sender: FDA-Public Use
  Company Number: IT-ASTRAZENECA-2010SE31301

PATIENT
  Age: 54 Year
  Sex: Male

DRUGS (7)
  1. CRESTOR [Suspect]
     Indication: DYSLIPIDAEMIA
     Route: 048
     Dates: start: 20091001
  2. CRESTOR [Suspect]
     Route: 048
     Dates: start: 20091229, end: 20100115
  3. METOPROLOL [Concomitant]
     Route: 048
  4. RANITIDINE [Concomitant]
     Indication: THROMBOSIS PROPHYLAXIS
     Dosage: 1 D.U.
     Route: 048
  5. PLAVIX [Concomitant]
     Indication: THROMBOSIS PROPHYLAXIS
     Dosage: 1 D.U.
     Route: 048
  6. ASPIRIN [Concomitant]
     Indication: THROMBOSIS PROPHYLAXIS
     Dosage: 1 D.U.
     Route: 048
  7. MINITRAN [Concomitant]
     Indication: MYOCARDIAL ISCHAEMIA
     Dosage: 1 D.U.
     Route: 062

REACTIONS (2)
  - BLOOD CREATINE PHOSPHOKINASE INCREASED [None]
  - VERTIGO [None]
